FAERS Safety Report 11632889 (Version 1)
Quarter: 2015Q4

REPORT INFORMATION
  Report Type: Spontaneous
  Country: US (occurrence: US)
  Receive Date: 20151015
  Receipt Date: 20151015
  Transmission Date: 20160304
  Serious: No
  Sender: FDA-Public Use
  Company Number: US-BAYER-2015-444557

PATIENT
  Age: 87 Year
  Sex: Female
  Weight: 113.38 kg

DRUGS (1)
  1. CLARITIN-D 24 HOUR [Suspect]
     Active Substance: LORATADINE\PSEUDOEPHEDRINE SULFATE
     Dosage: 1 DF, HS
     Route: 048

REACTIONS (2)
  - Therapeutic response unexpected [None]
  - Product use issue [None]
